FAERS Safety Report 9321425 (Version 1)
Quarter: 2013Q2

REPORT INFORMATION
  Report Type: Spontaneous
  Country: US (occurrence: None)
  Receive Date: 20130531
  Receipt Date: 20130531
  Transmission Date: 20140414
  Serious: Yes (Hospitalization)
  Sender: FDA-Public Use
  Company Number: None

PATIENT
  Age: 7 Year
  Sex: Male
  Weight: 23.7 kg

DRUGS (2)
  1. CYTARABINE [Suspect]
     Dates: end: 20130514
  2. ETOPOSIDE (VP-16) [Suspect]
     Dates: end: 20130514

REACTIONS (15)
  - Febrile neutropenia [None]
  - Stomatitis [None]
  - Hypophagia [None]
  - Decreased activity [None]
  - Haemoglobin decreased [None]
  - Platelet count decreased [None]
  - Tachycardia [None]
  - Hypotension [None]
  - Lethargy [None]
  - Listless [None]
  - Septic shock [None]
  - Hypoperfusion [None]
  - Streptococcal bacteraemia [None]
  - Endocarditis bacterial [None]
  - Device related infection [None]
